FAERS Safety Report 6083399-2 (Version None)
Quarter: 2009Q1

REPORT INFORMATION
  Report Type: 
  Country: None (occurrence: None)
  Receive Date: 20090219
  Receipt Date: 20090112
  Transmission Date: 20090719
  Serious: No
  Sender: FDA-Public Use
  Company Number: US-BAYER-200910111BCC

PATIENT
  Age: 69 Year
  Sex: Female
  Weight: 93 kg

DRUGS (7)
  1. ALEVE [Suspect]
     Indication: ARTHRITIS
     Dosage: TOTAL DAILY DOSE: 440 MG  UNIT DOSE: 220 MG
     Dates: start: 20081101, end: 20081230
  2. LYRICA [Concomitant]
  3. CYMBALTA [Concomitant]
  4. LASIX [Concomitant]
  5. HUMALOG [Concomitant]
  6. PREDNISONE [Concomitant]
  7. TOPROL-XL [Concomitant]

REACTIONS (6)
  - ARTHRALGIA [None]
  - BURNING SENSATION [None]
  - JOINT SWELLING [None]
  - OEDEMA PERIPHERAL [None]
  - PAIN IN EXTREMITY [None]
  - RASH [None]
